FAERS Safety Report 14759524 (Version 1)
Quarter: 2018Q2

REPORT INFORMATION
  Report Type: Spontaneous
  Country: US (occurrence: US)
  Receive Date: 20180413
  Receipt Date: 20180413
  Transmission Date: 20180711
  Serious: Yes (Other)
  Sender: FDA-Public Use
  Company Number: US-TARO-2018TAR00252

PATIENT
  Sex: Female
  Weight: 68.93 kg

DRUGS (6)
  1. AREDS VITAMIN [Concomitant]
  2. WARFARIN SODIUM TABLETS USP 1MG [Suspect]
     Active Substance: WARFARIN SODIUM
     Indication: ATRIAL FIBRILLATION
     Dosage: 1 MG, 4X/WEEK (TOTAL DOSE 5 MG 4X/WEEK)
     Route: 048
  3. WARFARIN SODIUM TABLETS USP 4MG [Suspect]
     Active Substance: WARFARIN SODIUM
     Indication: ATRIAL FIBRILLATION
     Dosage: 4 MG, 1X/DAY (TOTAL DOSE 4 MG 3X/WEEK AND 5 MG 4X/WEEK)
     Route: 048
  4. ASPIRIN (BABY) [Concomitant]
     Active Substance: ASPIRIN
  5. DAPSONE. [Suspect]
     Active Substance: DAPSONE
     Dosage: UNK
     Dates: end: 20180331
  6. VITAMIN D [Concomitant]
     Active Substance: CHOLECALCIFEROL

REACTIONS (9)
  - Malaise [Recovering/Resolving]
  - Eczema [Recovering/Resolving]
  - Concussion [Recovered/Resolved]
  - Fatigue [Not Recovered/Not Resolved]
  - Post concussion syndrome [Recovering/Resolving]
  - Ocular icterus [Recovering/Resolving]
  - Muscle spasms [Recovering/Resolving]
  - Fall [Recovered/Resolved]
  - Abdominal pain upper [Recovering/Resolving]

NARRATIVE: CASE EVENT DATE: 2017
